FAERS Safety Report 13548321 (Version 1)
Quarter: 2017Q2

REPORT INFORMATION
  Report Type: Spontaneous
  Country: US (occurrence: US)
  Receive Date: 20170516
  Receipt Date: 20170516
  Transmission Date: 20170830
  Serious: No
  Sender: FDA-Public Use
  Company Number: US-JNJFOC-20170314890

PATIENT
  Sex: Female

DRUGS (2)
  1. MENS ROGAINE EXTRA STRENGTH [Suspect]
     Active Substance: MINOXIDIL
     Indication: PRURITUS
     Dosage: ABOUT A TABLESPOON
     Route: 061
  2. MENS ROGAINE EXTRA STRENGTH [Suspect]
     Active Substance: MINOXIDIL
     Indication: DERMATITIS PSORIASIFORM
     Dosage: ABOUT A TABLESPOON
     Route: 061

REACTIONS (2)
  - Intentional product misuse [Unknown]
  - Product use issue [Unknown]
